FAERS Safety Report 21340313 (Version 1)
Quarter: 2022Q3

REPORT INFORMATION
  Report Type: Spontaneous
  Country: US (occurrence: US)
  Receive Date: 20220916
  Receipt Date: 20220916
  Transmission Date: 20221027
  Serious: No
  Sender: FDA-Public Use
  Company Number: US-KVK-TECH, INC-20220400025

PATIENT

DRUGS (3)
  1. OXYCODONE HYDROCHLORIDE [Suspect]
     Active Substance: OXYCODONE HYDROCHLORIDE
     Indication: Pain
     Dosage: 10 MILLIGRAM HALF TABLET THREE TIMES A DAY (CUT THE MEDICATION WITH A PILL CUTTER)
     Dates: start: 202002
  2. OXYCODONE HYDROCHLORIDE [Suspect]
     Active Substance: OXYCODONE HYDROCHLORIDE
     Dosage: 10 MILLIGRAM HALF TABLET THREE TIMES A DAY (CUT THE MEDICATION WITH A PILL CUTTER)
     Dates: start: 202106, end: 202109
  3. OXYCODONE HYDROCHLORIDE [Suspect]
     Active Substance: OXYCODONE HYDROCHLORIDE
     Dosage: 10 MILLIGRAM HALF TABLET THREE TIMES A DAY (CUT THE MEDICATION WITH A PILL CUTTER)
     Dates: start: 202203

REACTIONS (4)
  - Vomiting [Unknown]
  - Diarrhoea [Unknown]
  - Wrong technique in product usage process [Unknown]
  - Drug ineffective [Unknown]

NARRATIVE: CASE EVENT DATE: 20210601
